FAERS Safety Report 7072672-7 (Version None)
Quarter: 2010Q4

REPORT INFORMATION
  Report Type: 
  Country: None (occurrence: None)
  Receive Date: 20101029
  Receipt Date: 20100226
  Transmission Date: 20110411
  Serious: No
  Sender: FDA-Public Use
  Company Number: A0847033A

PATIENT
  Age: 76 Year
  Sex: Female

DRUGS (8)
  1. ADVAIR DISKUS 100/50 [Suspect]
     Indication: CONNECTIVE TISSUE INFLAMMATION
     Dosage: 1PUFF TWICE PER DAY
     Route: 055
     Dates: start: 20100222, end: 20100225
  2. SYNTHROID [Concomitant]
  3. ALPRAZOLAM [Concomitant]
  4. VITAMIN B [Concomitant]
  5. VITAMIN E [Concomitant]
  6. PERSERVISION [Concomitant]
  7. CALCIUM + D [Concomitant]
  8. XANAX [Concomitant]
     Indication: MENIERE'S DISEASE

REACTIONS (3)
  - DIZZINESS [None]
  - HEADACHE [None]
  - NAUSEA [None]
